FAERS Safety Report 10631532 (Version 1)
Quarter: 2014Q4

REPORT INFORMATION
  Report Type: Spontaneous
  Country: US (occurrence: US)
  Receive Date: 20141205
  Receipt Date: 20141205
  Transmission Date: 20150529
  Serious: No
  Sender: FDA-Public Use
  Company Number: US-BRISTOL-MYERS SQUIBB COMPANY-20998464

PATIENT
  Age: 57 Year
  Sex: Female

DRUGS (12)
  1. ESTRACE [Concomitant]
     Active Substance: ESTRADIOL
  2. TOPROL XL [Concomitant]
     Active Substance: METOPROLOL SUCCINATE
     Dosage: EXTENDED RELEASE TABS
     Route: 048
  3. DIVIGEL [Concomitant]
     Active Substance: ESTRADIOL
     Route: 062
  4. PRILOSEC [Concomitant]
     Active Substance: OMEPRAZOLE MAGNESIUM
     Dosage: CAPS
     Route: 048
  5. DULERA [Concomitant]
     Active Substance: FORMOTEROL FUMARATE DIHYDRATE\MOMETASONE FUROATE
  6. LEVOTHYROXINE [Concomitant]
     Active Substance: LEVOTHYROXINE
     Dosage: TABS
     Route: 048
  7. ZANTAC [Concomitant]
     Active Substance: RANITIDINE HYDROCHLORIDE
     Dosage: TABS
     Route: 048
  8. BYETTA [Suspect]
     Active Substance: EXENATIDE
  9. SINGULAIR [Concomitant]
     Active Substance: MONTELUKAST SODIUM
     Route: 048
  10. METFORMIN HCL [Suspect]
     Active Substance: METFORMIN HYDROCHLORIDE
     Route: 048
  11. PYRIDIUM [Concomitant]
     Active Substance: PHENAZOPYRIDINE
  12. LAMICTAL [Concomitant]
     Active Substance: LAMOTRIGINE
     Dosage: TABS
     Route: 048

REACTIONS (9)
  - Pain in extremity [Unknown]
  - Vision blurred [Unknown]
  - Nausea [Unknown]
  - Constipation [Unknown]
  - Weight decreased [Unknown]
  - Somnolence [Unknown]
  - Muscle spasms [Unknown]
  - Hyperhidrosis [Unknown]
  - Headache [Unknown]
